FAERS Safety Report 6669385-X (Version None)
Quarter: 2010Q2

REPORT INFORMATION
  Report Type: 
  Country: None (occurrence: None)
  Receive Date: 20100406
  Receipt Date: 20100401
  Transmission Date: 20101027
  Serious: Yes (Life-Threatening)
  Sender: FDA-Public Use
  Company Number: B0404521A

PATIENT
  Age: 41 Year
  Sex: Female

DRUGS (1)
  1. LITHIUM [Suspect]
     Indication: DEPRESSION
     Route: 065

REACTIONS (12)
  - ABDOMINAL TENDERNESS [None]
  - DRUG RASH WITH EOSINOPHILIA AND SYSTEMIC SYMPTOMS [None]
  - EOSINOPHIL COUNT ABNORMAL [None]
  - HEPATIC ENZYME INCREASED [None]
  - LYMPHADENOPATHY [None]
  - ORAL DISORDER [None]
  - PAIN [None]
  - PHARYNGITIS [None]
  - PRURITUS [None]
  - PYREXIA [None]
  - RASH [None]
  - WHITE BLOOD CELL COUNT ABNORMAL [None]
